FAERS Safety Report 24664708 (Version 1)
Quarter: 2024Q4

REPORT INFORMATION
  Report Type: Spontaneous
  Country: US (occurrence: US)
  Receive Date: 20241126
  Receipt Date: 20241126
  Transmission Date: 20250114
  Serious: No
  Sender: BLUEPRINT MEDICINES
  Company Number: US-Blueprint Medicines Corporation-5426

PATIENT
  Age: 52 Year
  Sex: Female

DRUGS (1)
  1. AYVAKIT [Suspect]
     Active Substance: AVAPRITINIB
     Indication: Systemic mastocytosis
     Route: 048
     Dates: start: 20240907

REACTIONS (3)
  - Headache [Unknown]
  - Thirst [Unknown]
  - Lip dry [Unknown]

NARRATIVE: CASE EVENT DATE: 20241120
